FAERS Safety Report 23064048 (Version 7)
Quarter: 2023Q4

REPORT INFORMATION
  Report Type: Spontaneous
  Country: US (occurrence: US)
  Receive Date: 20231013
  Receipt Date: 20231127
  Transmission Date: 20240110
  Serious: Yes (Hospitalization, Other)
  Sender: FDA-Public Use
  Company Number: US-SA-SAC20231006000075

PATIENT
  Age: 64 Year
  Sex: Female
  Weight: 70 kg

DRUGS (10)
  1. DUPIXENT [Suspect]
     Active Substance: DUPILUMAB
     Indication: Eczema
     Dosage: 600 MG, 1X
     Route: 058
     Dates: start: 202308, end: 202308
  2. DUPIXENT [Suspect]
     Active Substance: DUPILUMAB
     Indication: Psoriasis
     Dosage: 300 MG, QOW
     Route: 058
     Dates: start: 2023, end: 2023
  3. DUPIXENT [Suspect]
     Active Substance: DUPILUMAB
     Indication: Dermatitis atopic
  4. PREDNISONE [Concomitant]
     Active Substance: PREDNISONE
     Dosage: 3DF; QD
     Route: 048
  5. PREDNISONE [Concomitant]
     Active Substance: PREDNISONE
     Dosage: 2DF; QD
     Route: 048
  6. PREDNISONE [Concomitant]
     Active Substance: PREDNISONE
     Dosage: 1DF; QD
     Route: 048
  7. TRIAMCINOLONE ACETONIDE [Concomitant]
     Active Substance: TRIAMCINOLONE ACETONIDE
     Route: 061
  8. METOPROLOL SUCCINATE [Concomitant]
     Active Substance: METOPROLOL SUCCINATE
     Dosage: UNK
  9. LOSARTAN [Concomitant]
     Active Substance: LOSARTAN
     Dosage: UNK
  10. HYDROCHLOROTHIAZIDE [Concomitant]
     Active Substance: HYDROCHLOROTHIAZIDE
     Dosage: UNK

REACTIONS (25)
  - Thrombosis [Unknown]
  - Pain in extremity [Unknown]
  - Pedal pulse increased [Unknown]
  - Skin warm [Not Recovered/Not Resolved]
  - Skin discolouration [Unknown]
  - Weight bearing difficulty [Unknown]
  - Osteonecrosis [Unknown]
  - Atrial septal defect [Unknown]
  - Scab [Unknown]
  - Skin plaque [Unknown]
  - Erythema [Unknown]
  - Joint swelling [Unknown]
  - Condition aggravated [Unknown]
  - Mobility decreased [Unknown]
  - Gait disturbance [Unknown]
  - Psoriasis [Unknown]
  - Weight increased [Unknown]
  - Fatigue [Unknown]
  - Urticaria [Unknown]
  - Arthralgia [Unknown]
  - Eczema [Unknown]
  - Eye pruritus [Unknown]
  - Surgery [Unknown]
  - Rash [Recovering/Resolving]
  - Product use in unapproved indication [Unknown]

NARRATIVE: CASE EVENT DATE: 20230101
